FAERS Safety Report 11972033 (Version 2)
Quarter: 2016Q1

REPORT INFORMATION
  Report Type: Spontaneous
  Country: JP (occurrence: JP)
  Receive Date: 20160128
  Receipt Date: 20160209
  Transmission Date: 20160526
  Serious: Yes (Other)
  Sender: FDA-Public Use
  Company Number: PHJP2016JP001825

PATIENT
  Age: 90 Year
  Sex: Female

DRUGS (3)
  1. NILOTINIB [Suspect]
     Active Substance: NILOTINIB
     Indication: CHRONIC MYELOID LEUKAEMIA
     Dosage: 400 MG, QD
     Route: 065
     Dates: start: 200907, end: 201001
  2. NILOTINIB [Suspect]
     Active Substance: NILOTINIB
     Dosage: 800 MG, QD
     Route: 065
     Dates: start: 201001
  3. NILOTINIB [Suspect]
     Active Substance: NILOTINIB
     Dosage: 400 MG, QD
     Route: 065

REACTIONS (5)
  - Pulmonary congestion [Recovering/Resolving]
  - Cardiomegaly [Recovering/Resolving]
  - Electrocardiogram QT prolonged [Recovering/Resolving]
  - Cardiac failure [Recovering/Resolving]
  - Pleural effusion [Recovering/Resolving]
